FAERS Safety Report 7436584-9 (Version None)
Quarter: 2011Q2

REPORT INFORMATION
  Report Type: 
  Country: None (occurrence: None)
  Receive Date: 20110426
  Receipt Date: 20110412
  Transmission Date: 20111010
  Serious: Yes (Hospitalization)
  Sender: FDA-Public Use
  Company Number: FR-RANBAXY-2011RR-43778

PATIENT
  Age: 35 Year
  Sex: Male

DRUGS (7)
  1. DETURGYLONE [Suspect]
     Indication: PRODUCT USED FOR UNKNOWN INDICATION
     Dosage: UNK
     Route: 045
     Dates: start: 20110103, end: 20110107
  2. IBUPROFEN [Suspect]
     Indication: PYREXIA
     Dosage: 400 MG, TID
     Route: 048
     Dates: start: 20110103, end: 20110107
  3. TOPLEXIL [Suspect]
     Indication: PRODUCT USED FOR UNKNOWN INDICATION
     Dosage: UNK
     Route: 048
     Dates: start: 20110103, end: 20110107
  4. TAVANIC [Suspect]
     Indication: PYREXIA
     Dosage: 500 MG, SINGLE
     Route: 048
     Dates: start: 20110106, end: 20110106
  5. AMOXICILLIN [Suspect]
     Indication: TONSILLITIS
     Dosage: 1 G, TID
     Route: 048
     Dates: start: 20101223, end: 20101228
  6. TERBINAFINE [Suspect]
     Indication: PRODUCT USED FOR UNKNOWN INDICATION
     Dosage: UNK
     Route: 065
     Dates: start: 20110103, end: 20110107
  7. ACETAMINOPHEN [Suspect]
     Indication: PYREXIA
     Dosage: UNK
     Route: 048
     Dates: start: 20110103, end: 20110107

REACTIONS (1)
  - RASH ERYTHEMATOUS [None]
